FAERS Safety Report 10181227 (Version 1)
Quarter: 2014Q2

REPORT INFORMATION
  Report Type: Spontaneous
  Country: US (occurrence: US)
  Receive Date: 20140519
  Receipt Date: 20140519
  Transmission Date: 20141212
  Serious: No
  Sender: FDA-Public Use
  Company Number: US-AMGEN INC.-USASP2014030001

PATIENT
  Age: 64 Year
  Sex: Female

DRUGS (12)
  1. PROLIA [Suspect]
     Indication: OSTEOPOROSIS
     Dosage: UNK
     Route: 065
     Dates: start: 20140131
  2. DILAUDID [Concomitant]
     Indication: PAIN
  3. MEDROL                             /00049601/ [Concomitant]
     Dosage: 1 MG, QD
  4. MELOXICAM [Concomitant]
  5. SYNTHROID [Concomitant]
  6. BENAZEPRIL [Concomitant]
  7. ARAVA [Concomitant]
  8. CILOSTAZOL [Concomitant]
  9. PREVACID [Concomitant]
  10. VITAMIN 15 [Concomitant]
  11. CITRACAL + D                       /01438101/ [Concomitant]
     Dosage: 12000 MG, UNK
  12. RITUXAN [Concomitant]
     Dosage: UNK UNK, Q6MO

REACTIONS (2)
  - Groin pain [Unknown]
  - Paraesthesia [Not Recovered/Not Resolved]
